FAERS Safety Report 11938838 (Version 2)
Quarter: 2016Q1

REPORT INFORMATION
  Report Type: Spontaneous
  Country: BA (occurrence: BA)
  Receive Date: 20160122
  Receipt Date: 20160122
  Transmission Date: 20160526
  Serious: Yes (Hospitalization, Other)
  Sender: FDA-Public Use
  Company Number: BA-GLAXOSMITHKLINE-BA2016GSK003011

PATIENT
  Age: 44 Year
  Sex: Female

DRUGS (3)
  1. LOSARTAN. [Concomitant]
     Active Substance: LOSARTAN
     Indication: HYPERTENSION
  2. OLANZAPINE. [Concomitant]
     Active Substance: OLANZAPINE
  3. LAMOTRIGINE. [Suspect]
     Active Substance: LAMOTRIGINE
     Indication: EPILEPSY

REACTIONS (18)
  - Eosinophilia [Unknown]
  - White blood cell count increased [Unknown]
  - Blood bilirubin increased [Unknown]
  - Cough [Unknown]
  - Bronchiolitis [Unknown]
  - Oedema [Unknown]
  - Rhinorrhoea [Unknown]
  - Condition aggravated [Unknown]
  - Pyrexia [Unknown]
  - Swelling face [Unknown]
  - Erythema [Unknown]
  - Flushing [Unknown]
  - Rash maculo-papular [Unknown]
  - Rash erythematous [Unknown]
  - Aspartate aminotransferase increased [Unknown]
  - Alanine aminotransferase increased [Unknown]
  - Rash [Unknown]
  - Drug reaction with eosinophilia and systemic symptoms [Recovered/Resolved]
